FAERS Safety Report 9707048 (Version 1)
Quarter: 2013Q4

REPORT INFORMATION
  Report Type: Spontaneous
  Country: US (occurrence: US)
  Receive Date: 20131125
  Receipt Date: 20131125
  Transmission Date: 20140711
  Serious: No
  Sender: FDA-Public Use
  Company Number: US-PFIZER INC-2013336087

PATIENT
  Sex: Male

DRUGS (1)
  1. ZOLOFT [Suspect]
     Dosage: 200 MG, DAILY
     Dates: start: 2011, end: 201311

REACTIONS (3)
  - Malaise [Unknown]
  - Swelling [Unknown]
  - Head discomfort [Unknown]
